FAERS Safety Report 7067250-X (Version None)
Quarter: 2010Q4

REPORT INFORMATION
  Report Type: 
  Country: None (occurrence: None)
  Receive Date: 20101028
  Receipt Date: 20101022
  Transmission Date: 20110411
  Serious: No
  Sender: FDA-Public Use
  Company Number: US-BIOGENIDEC-2010BI036681

PATIENT
  Sex: Female

DRUGS (1)
  1. AVONEX [Suspect]
     Indication: MULTIPLE SCLEROSIS
     Route: 030
     Dates: start: 20060101

REACTIONS (13)
  - BLOOD POTASSIUM DECREASED [None]
  - BONE PAIN [None]
  - CHEST PAIN [None]
  - CONTUSION [None]
  - COORDINATION ABNORMAL [None]
  - CYSTITIS [None]
  - FALL [None]
  - LIGAMENT SPRAIN [None]
  - LOSS OF CONTROL OF LEGS [None]
  - MUSCLE SPASMS [None]
  - OEDEMA PERIPHERAL [None]
  - OSTEOPOROSIS [None]
  - PAIN [None]
